FAERS Safety Report 8140265-6 (Version None)
Quarter: 2012Q1

REPORT INFORMATION
  Report Type: 
  Country: None (occurrence: None)
  Receive Date: 20120216
  Receipt Date: 20120120
  Transmission Date: 20120608
  Serious: Yes (Hospitalization, Other)
  Sender: FDA-Public Use
  Company Number: JP-BAYER-2011-122205

PATIENT
  Age: 57 Year
  Sex: Female

DRUGS (1)
  1. INTERFERON BETA-1B [Suspect]

REACTIONS (1)
  - TYPE 1 DIABETES MELLITUS [None]
